FAERS Safety Report 10575809 (Version 8)
Quarter: 2015Q4

REPORT INFORMATION
  Report Type: Spontaneous
  Country: US (occurrence: US)
  Receive Date: 20141111
  Receipt Date: 20151007
  Transmission Date: 20160304
  Serious: Yes (Hospitalization, Other)
  Sender: FDA-Public Use
  Company Number: US-BAYER-2014-163074

PATIENT
  Age: 53 Year
  Sex: Male

DRUGS (4)
  1. KOGENATE FS [Suspect]
     Active Substance: ANTIHEMOPHILIC FACTOR, HUMAN RECOMBINANT
     Indication: FACTOR VIII DEFICIENCY
     Dosage: 3300 U, 3-5 TIMES PER MONTH OR AS NEEDED DAILY TO TREAT BLEEDING EPISODES
     Route: 042
  2. KOGENATE FS [Suspect]
     Active Substance: ANTIHEMOPHILIC FACTOR, HUMAN RECOMBINANT
     Indication: FACTOR VIII DEFICIENCY
     Dosage: 3300 U, 3-5 TIMES PER MONTH
     Route: 042
     Dates: start: 20141020
  3. KOGENATE FS [Suspect]
     Active Substance: ANTIHEMOPHILIC FACTOR, HUMAN RECOMBINANT
     Indication: FACTOR VIII DEFICIENCY
     Dosage: 3300 U, 3-5 TIMES PER MONTH
     Route: 042
     Dates: start: 20141201, end: 20141229
  4. KOGENATE FS [Suspect]
     Active Substance: ANTIHEMOPHILIC FACTOR, HUMAN RECOMBINANT
     Indication: FACTOR VIII DEFICIENCY
     Dosage: 3300 U, 3-5 TIMES PER MONTH OR AS NEEDED DAILY TO TREAT BLEEDING EPISODES
     Route: 042

REACTIONS (7)
  - Haemorrhage [None]
  - Haemarthrosis [None]
  - Haemorrhage [None]
  - Limb injury [None]
  - Haemarthrosis [None]
  - Suture rupture [None]
  - Haemorrhage [None]

NARRATIVE: CASE EVENT DATE: 20141025
